FAERS Safety Report 10679155 (Version 1)
Quarter: 2014Q4

REPORT INFORMATION
  Report Type: Spontaneous
  Country: NL (occurrence: NL)
  Receive Date: 20141229
  Receipt Date: 20141229
  Transmission Date: 20150529
  Serious: Yes (Hospitalization, Other)
  Sender: FDA-Public Use
  Company Number: NL-PFIZER INC-2014356846

PATIENT
  Age: 15 Year
  Sex: Female
  Weight: 58 kg

DRUGS (2)
  1. AZITHROMYCIN [Suspect]
     Active Substance: AZITHROMYCIN ANHYDROUS
     Indication: ACNE
     Dosage: 250 MG, EVERY 2 WEEKS 3 DAYS 1 TABLET
     Dates: start: 201210, end: 20141201
  2. YASMIN [Concomitant]
     Active Substance: DROSPIRENONE\ETHINYL ESTRADIOL
     Dosage: 1 DF, 1X/DAY
     Dates: start: 201406

REACTIONS (3)
  - Concussion [Recovering/Resolving]
  - Epilepsy [Unknown]
  - Seizure [Recovering/Resolving]

NARRATIVE: CASE EVENT DATE: 20141121
